FAERS Safety Report 13492231 (Version 1)
Quarter: 2017Q2

REPORT INFORMATION
  Report Type: Spontaneous
  Country: US (occurrence: US)
  Receive Date: 20170427
  Receipt Date: 20170427
  Transmission Date: 20170830
  Serious: Yes (Hospitalization, Other)
  Sender: FDA-Public Use
  Company Number: US-INDIVIOR LIMITED-INDV-100769-2017

PATIENT
  Age: 51 Year
  Sex: Female

DRUGS (2)
  1. NORFLEX [Suspect]
     Active Substance: ORPHENADRINE CITRATE
     Indication: MUSCLE SPASMS
     Dosage: 100MG, UNK
     Route: 065
  2. SUBOXONE [Suspect]
     Active Substance: BUPRENORPHINE HYDROCHLORIDE\NALOXONE HYDROCHLORIDE
     Indication: PRODUCT USED FOR UNKNOWN INDICATION
     Dosage: 24MG, UNK
     Route: 060

REACTIONS (4)
  - Muscle spasms [Unknown]
  - Drug use disorder [Unknown]
  - Paranoia [Unknown]
  - Hallucination [Unknown]
